FAERS Safety Report 5534329-0 (Version None)
Quarter: 2007Q4

REPORT INFORMATION
  Report Type: 
  Country: None (occurrence: None)
  Receive Date: 20071205
  Receipt Date: 20071126
  Transmission Date: 20080405
  Serious: Yes (Hospitalization)
  Sender: FDA-Public Use
  Company Number: PHBS2007DE19860

PATIENT
  Age: 28 Year
  Sex: Female

DRUGS (4)
  1. CIBADREX [Suspect]
     Indication: SUICIDE ATTEMPT
     Dosage: UNK, ONCE/SINGLE
     Route: 048
     Dates: start: 20071117, end: 20071117
  2. CARVEDILOL [Suspect]
     Indication: SUICIDE ATTEMPT
     Dosage: UNK, ONCE/SINGLE
     Route: 048
     Dates: start: 20071117, end: 20071117
  3. PAROXETIN [Suspect]
     Indication: SUICIDE ATTEMPT
     Dosage: UNK, ONCE/SINGLE
     Dates: start: 20071117, end: 20071117
  4. DIURETICS [Suspect]
     Indication: SUICIDE ATTEMPT
     Dosage: UNK, ONCE/SINGLE
     Route: 048
     Dates: start: 20071117, end: 20071117

REACTIONS (2)
  - INTENTIONAL SELF-INJURY [None]
  - MYDRIASIS [None]
